FAERS Safety Report 16502282 (Version 4)
Quarter: 2020Q1

REPORT INFORMATION
  Report Type: Spontaneous
  Country: US (occurrence: US)
  Receive Date: 20190701
  Receipt Date: 20200220
  Transmission Date: 20200409
  Serious: No
  Sender: FDA-Public Use
  Company Number: US-PFIZER INC-2018483402

PATIENT
  Age: 61 Year
  Sex: Male

DRUGS (2)
  1. RAPAMUNE [Suspect]
     Active Substance: SIROLIMUS
     Dosage: 2 MG, DAILY (1 MG TAKE 2 TABLETS (2 MG TOTAL)) (TAKE 2 TABLETS BY MOUTH DAILY)
     Route: 048
  2. RAPAMUNE [Suspect]
     Active Substance: SIROLIMUS
     Indication: LIVER TRANSPLANT
     Dosage: 2 MG, ONCE DAILY (1 MG, TAKE 2 TABLETS ORALLY ONCE DAILY)
     Route: 048

REACTIONS (4)
  - Product use in unapproved indication [Unknown]
  - Renal disorder [Unknown]
  - Expired product administered [Unknown]
  - Off label use [Unknown]
